FAERS Safety Report 8821743 (Version 1)
Quarter: 2012Q4

REPORT INFORMATION
  Report Type: 
  Country: US (occurrence: US)
  Receive Date: 20121002
  Receipt Date: 20121002
  Transmission Date: 20130627
  Serious: Yes (Other)
  Sender: FDA-Public Use
  Company Number: US-009507513-1210USA000708

PATIENT
  Sex: Female

DRUGS (22)
  1. JANUMET [Suspect]
     Dosage: 50mg/500mg,qd
     Route: 048
  2. ZOCOR [Suspect]
     Route: 048
  3. DIOVAN [Suspect]
     Dosage: 160 mg, qd
     Route: 048
  4. METFORMIN [Suspect]
     Dosage: 500 mg, qd
     Route: 048
  5. NITROLINGUAL [Suspect]
     Dosage: 0.4 mg, prn
  6. ZYRTEC [Suspect]
     Dosage: 10 mg, qd
     Route: 048
  7. GABAPENTIN [Suspect]
     Dosage: 2 DF, tid
     Route: 048
  8. VICODIN [Suspect]
     Dosage: 1 DF, q4h
     Route: 048
  9. BUPROPION HYDROCHLORIDE [Suspect]
     Dosage: 300 mg, qd
     Route: 048
  10. LOZOL [Suspect]
     Dosage: 1.5 mg, qd
     Route: 048
  11. KLONOPIN [Suspect]
     Dosage: 0.5 mg, bid
     Route: 048
  12. PRILOSEC [Suspect]
     Dosage: 20 mg, bid
     Route: 048
  13. CARAFATE [Suspect]
     Dosage: 1 g, bid
     Route: 048
  14. AGGRENOX [Suspect]
     Dosage: UNK, bid
     Route: 048
  15. FLONASE [Suspect]
     Dosage: 4 DF, qd
     Route: 045
  16. FLOVENT [Suspect]
     Dosage: 2 DF, bid
  17. VENTOLIN (ALBUTEROL) [Suspect]
     Dosage: 2 DF, q2h
  18. IMITREX (SUMATRIPTAN SUCCINATE) [Suspect]
     Dosage: 100 mg, prn
     Route: 048
  19. EPIPEN [Suspect]
     Route: 062
  20. LORTAB [Suspect]
     Route: 048
  21. VITAMINS (UNSPECIFIED) [Suspect]
  22. ZANAFLEX [Suspect]
     Dosage: 2 mg, bid
     Route: 048

REACTIONS (3)
  - Myocardial infarction [Unknown]
  - Condition aggravated [Unknown]
  - Memory impairment [Unknown]
